FAERS Safety Report 5213232-X (Version None)
Quarter: 2007Q1

REPORT INFORMATION
  Report Type: 
  Country: None (occurrence: None)
  Receive Date: 20070119
  Receipt Date: 20070108
  Transmission Date: 20070707
  Serious: Yes (Hospitalization)
  Sender: FDA-Public Use
  Company Number: GB-NOVOPROD-257194

PATIENT
  Age: 63 Year
  Sex: Female
  Weight: 87 kg

DRUGS (13)
  1. LEVEMIR [Suspect]
     Indication: INSULIN-REQUIRING TYPE II DIABETES MELLITUS
     Dosage: 100 IU, QD
     Route: 058
     Dates: start: 20060109, end: 20060717
  2. AMLODIPINE [Concomitant]
     Dosage: 5 MG, QD
     Route: 048
     Dates: start: 20020101
  3. ASPIRIN [Concomitant]
     Dosage: 75 MG, QD
     Route: 048
     Dates: start: 19980101
  4. BECLOMETHASONE DIPROPIONATE [Concomitant]
     Dosage: 100 UG, QD
     Route: 055
     Dates: start: 20020101
  5. BISOPROLOL FUMARATE [Concomitant]
     Dosage: 10 MG, QD
     Route: 048
     Dates: start: 20030101
  6. DOXAZOSIN MESYLATE [Concomitant]
     Dosage: 4 MG, QD
     Route: 048
     Dates: start: 20010101
  7. GTN-S [Concomitant]
     Dosage: 400 UG, QD
     Dates: start: 20010101
  8. OMEPRAZOLE [Concomitant]
     Dosage: 10 MG, QD
     Dates: start: 20030101
  9. PARACETAMOL [Concomitant]
     Dosage: 500 MG, QD
     Route: 048
     Dates: start: 20010101
  10. PEPTAC [Concomitant]
     Dosage: 5 ML, QD
     Dates: start: 20040101
  11. NICORANDIL [Concomitant]
     Dosage: 20 MG, QD
     Dates: start: 20040101
  12. PERINDOPRIL ERBUMINE [Concomitant]
     Dosage: 8 MG, QD
     Dates: start: 20010101
  13. SIMVASTATIN [Concomitant]
     Dosage: 40 MG, QD
     Dates: start: 20030101

REACTIONS (3)
  - CHEST PAIN [None]
  - HAIR COLOUR CHANGES [None]
  - MALAISE [None]
